FAERS Safety Report 6901190-9 (Version None)
Quarter: 2010Q3

REPORT INFORMATION
  Report Type: 
  Country: None (occurrence: None)
  Receive Date: 20100803
  Receipt Date: 20100726
  Transmission Date: 20110219
  Serious: Yes (Hospitalization)
  Sender: FDA-Public Use
  Company Number: US-BAYER-US-SHR-04-020548

PATIENT
  Age: 30 Year
  Sex: Female
  Weight: 93 kg

DRUGS (3)
  1. YASMIN [Suspect]
     Indication: ORAL CONTRACEPTION
     Dosage: 1 TAB(S), 1X/DAY [DAILY DOSE: 1 TAB(S)]
     Route: 048
     Dates: start: 20030101, end: 20030701
  2. MERIDIA [Concomitant]
  3. METFORMIN HCL [Concomitant]

REACTIONS (5)
  - BACK PAIN [None]
  - MENSTRUATION DELAYED [None]
  - PULMONARY EMBOLISM [None]
  - PULMONARY INFARCTION [None]
  - WEIGHT INCREASED [None]
